FAERS Safety Report 24579298 (Version 1)
Quarter: 2024Q4

REPORT INFORMATION
  Report Type: Spontaneous
  Country: US (occurrence: US)
  Receive Date: 20241105
  Receipt Date: 20241105
  Transmission Date: 20250115
  Serious: Yes (Other)
  Sender: JOHNSON AND JOHNSON
  Company Number: US-JNJFOC-20241079299

PATIENT
  Age: 31 Year
  Sex: Male

DRUGS (3)
  1. REMICADE [Suspect]
     Active Substance: INFLIXIMAB
     Indication: Crohn^s disease
     Route: 041
  2. MERCAPTOPURINE [Concomitant]
     Active Substance: MERCAPTOPURINE
  3. PREDNISONE [Concomitant]
     Active Substance: PREDNISONE

REACTIONS (1)
  - Disseminated blastomycosis [Recovered/Resolved]
